FAERS Safety Report 11168619 (Version 2)
Quarter: 2016Q2

REPORT INFORMATION
  Report Type: Spontaneous
  Country: DK (occurrence: DK)
  Receive Date: 20150605
  Receipt Date: 20160411
  Transmission Date: 20160815
  Serious: Yes (Life-Threatening)
  Sender: FDA-Public Use
  Company Number: DK-TEVA-568086ISR

PATIENT
  Age: 59 Year
  Sex: Male

DRUGS (11)
  1. FRISIUM [Concomitant]
     Active Substance: CLOBAZAM
  2. SIMVASTATIN. [Concomitant]
     Active Substance: SIMVASTATIN
  3. CIPROFLOXACIN. [Concomitant]
     Active Substance: CIPROFLOXACIN
  4. TAZOBACTAM [Concomitant]
     Active Substance: TAZOBACTAM
  5. VITAMIN D3 [Concomitant]
     Active Substance: CHOLECALCIFEROL
  6. METFORMINHYDROCHLORID [Concomitant]
  7. LAMOTRIGINE ^TEVA^ [Suspect]
     Active Substance: LAMOTRIGINE
     Indication: EPILEPSY
     Dosage: DOSIS: 25 MG PER DAY - DURING ESCALATION.
     Route: 048
     Dates: start: 201502, end: 201504
  8. AMLODIPIN [Concomitant]
     Active Substance: AMLODIPINE BESYLATE
  9. JERN C ^MEDIC^ [Concomitant]
  10. FUROSEMID [Concomitant]
     Active Substance: FUROSEMIDE
  11. PIPERACILLIN [Concomitant]
     Active Substance: PIPERACILLIN

REACTIONS (5)
  - Anaphylactic shock [Recovered/Resolved]
  - Rash [Recovered/Resolved]
  - Myelodysplastic syndrome [Recovered/Resolved]
  - Cardiac arrest [Recovered/Resolved]
  - Dyspnoea [Recovered/Resolved]

NARRATIVE: CASE EVENT DATE: 20150405
